FAERS Safety Report 8874891 (Version 4)
Quarter: 2013Q1

REPORT INFORMATION
  Report Type: Report from Study
  Country: GB (occurrence: IT)
  Receive Date: 20121030
  Receipt Date: 20130115
  Transmission Date: 20140127
  Serious: Yes (Death)
  Sender: FDA-Public Use
  Company Number: GB-ROCHE-1149496

PATIENT
  Age: 88 Year
  Sex: Male

DRUGS (5)
  1. METHOXY POLYETHYLENE GLYCOL-EPOETIN BETA [Suspect]
     Indication: NEPHROGENIC ANAEMIA
     Dosage: LAST DOSE PRIOR TO SAE:27/SEP/2012
     Route: 042
     Dates: start: 20101223
  2. CALCICHEW [Concomitant]
     Route: 065
     Dates: start: 20091123
  3. OMEPRAZOLE [Concomitant]
     Route: 065
     Dates: start: 20091123
  4. ALFACALCIDOL [Concomitant]
     Route: 065
     Dates: start: 20071213
  5. VITAMIN B12 [Concomitant]
     Route: 065
     Dates: start: 20100706

REACTIONS (1)
  - Pneumonia [Fatal]
